FAERS Safety Report 14860460 (Version 1)
Quarter: 2018Q2

REPORT INFORMATION
  Report Type: Not Available
  Country: US (occurrence: US)
  Receive Date: 20180508
  Receipt Date: 20180508
  Transmission Date: 20180711
  Serious: No
  Sender: FDA-Public Use
  Company Number: US-FOUNDATIONCONSUMERHC-2018-US-002108

PATIENT
  Age: 19 Year
  Sex: Female
  Weight: 70.31 kg

DRUGS (4)
  1. PLAN B ONE-STEP [Suspect]
     Active Substance: LEVONORGESTREL
     Dosage: 1 DOSE X 1
     Route: 048
     Dates: start: 20171231, end: 20171231
  2. PROAIR HFA [Suspect]
     Active Substance: ALBUTEROL SULFATE
  3. VITAMIN C [Suspect]
     Active Substance: ASCORBIC ACID
  4. UNSPECIFIED PROBIOTIC (DIETARY SUPPLEMENT) [Suspect]
     Active Substance: DIETARY SUPPLEMENT

REACTIONS (1)
  - Vaginal haemorrhage [Recovered/Resolved]

NARRATIVE: CASE EVENT DATE: 20180120
